FAERS Safety Report 4716111-7 (Version None)
Quarter: 2005Q3

REPORT INFORMATION
  Report Type: 
  Country: None (occurrence: None)
  Receive Date: 20050712
  Receipt Date: 20050202
  Transmission Date: 20060218
  Serious: Yes (Disabling)
  Sender: FDA-Public Use
  Company Number: M-05-043

PATIENT
  Sex: Male

DRUGS (1)
  1. AMIODARONE HCL [Suspect]
     Dates: start: 20031101, end: 20040601

REACTIONS (2)
  - BLINDNESS [None]
  - OPTIC NEURITIS [None]
